FAERS Safety Report 8376361-8 (Version None)
Quarter: 2012Q2

REPORT INFORMATION
  Report Type: 
  Country: None (occurrence: None)
  Receive Date: 20120522
  Receipt Date: 20120508
  Transmission Date: 20120825
  Serious: Yes (Life-Threatening, Hospitalization, Disabling, Other)
  Sender: FDA-Public Use
  Company Number: US-MYLANLABS-2009AC000040

PATIENT
  Sex: Male
  Weight: 64.41 kg

DRUGS (59)
  1. ASPIRIN [Concomitant]
  2. ZETIA [Concomitant]
     Route: 048
  3. VISICOL [Concomitant]
  4. AMOXICILLIN AND CLAVULANATE POTASSIUM [Concomitant]
  5. ACETAMINOPHEN W/ PROPOXYPHENE HCL [Concomitant]
  6. LYRICA [Concomitant]
  7. LINEZOLID [Concomitant]
     Route: 042
  8. LOTENSIN [Concomitant]
  9. METOPROLOL [Concomitant]
  10. ZOCOR [Concomitant]
     Route: 048
  11. CLOPIDOGREL [Concomitant]
  12. FUROSEMIDE [Concomitant]
  13. ACETAMINOPHEN AND HYDROCODONE BITARTRATE [Concomitant]
  14. OXYCODONE/ACETAMINOPHEN [Concomitant]
  15. BUMETANIDE [Concomitant]
     Route: 042
  16. OXYCODONE HCL [Concomitant]
  17. PHENERGAN [Concomitant]
  18. NOVOLIN 70/30 [Concomitant]
     Dosage: SLIDING SCALE
  19. PRILOSEC [Concomitant]
  20. POTASSIUM CHLORIDE [Concomitant]
     Route: 048
  21. COUMADIN [Concomitant]
  22. PLAVIX [Concomitant]
  23. FERROUS SULFATE TAB [Concomitant]
  24. ERGOCALCIFEROL [Concomitant]
  25. DIGOXIN [Suspect]
     Indication: PRODUCT USED FOR UNKNOWN INDICATION
     Route: 048
     Dates: start: 20060318, end: 20080420
  26. FLOMAX [Concomitant]
  27. ACCUPRIL [Concomitant]
  28. NIASPAN [Concomitant]
  29. BENAZEPRIL HYDROCHLORIDE [Concomitant]
     Route: 048
  30. NORVASC [Concomitant]
  31. MUPIROCIN [Concomitant]
  32. VITAMIN D [Concomitant]
  33. MOXIFLOXACIN [Concomitant]
     Route: 042
  34. HEMOCYTE PLUS [Concomitant]
  35. PREVPAC [Concomitant]
  36. METOLAZONE [Concomitant]
  37. ATIVAN [Concomitant]
  38. NITROGLYCERIN [Concomitant]
  39. PROCARDIA /00340701/ [Concomitant]
  40. LASIX [Concomitant]
  41. CORDARONE [Concomitant]
  42. VYTORIN [Concomitant]
     Dosage: 10/80
  43. DERMADEX /00016007/ [Concomitant]
  44. PHOSLO [Concomitant]
  45. PROTONIX [Concomitant]
     Route: 042
  46. HEMOCYTE [Concomitant]
  47. TRAZODONE [Concomitant]
  48. PHOSLO [Concomitant]
  49. AVELOX [Concomitant]
  50. PEPCID [Concomitant]
  51. ALBUTEROL SULFATE AND IPRATROPIUM BROMIDE [Concomitant]
  52. CHLOROTHIAZIDE [Concomitant]
     Route: 042
  53. TIMENTIN [Concomitant]
  54. ZAROXOLYN [Concomitant]
  55. AMIODARONE HCL [Concomitant]
  56. QUINAPRIL [Concomitant]
  57. HEPARIN [Concomitant]
  58. IRON SULFATETHIAMIN COMPOUND TAB [Concomitant]
     Route: 048
  59. MORPHINE [Concomitant]
     Dosage: 1 TO 2MG Q3H PRN

REACTIONS (109)
  - MYOCARDIAL INFARCTION [None]
  - CARDIAC FAILURE CONGESTIVE [None]
  - PULMONARY OEDEMA [None]
  - EJECTION FRACTION DECREASED [None]
  - DUODENITIS [None]
  - LEG AMPUTATION [None]
  - CHRONIC OBSTRUCTIVE PULMONARY DISEASE [None]
  - HYPONATRAEMIA [None]
  - DRUG HYPERSENSITIVITY [None]
  - RESPIRATORY DISTRESS [None]
  - ARRHYTHMIA [None]
  - ATELECTASIS [None]
  - SUPRAVENTRICULAR EXTRASYSTOLES [None]
  - BLOOD PRESSURE INCREASED [None]
  - ASTHENIA [None]
  - PAIN IN EXTREMITY [None]
  - LEUKOCYTOSIS [None]
  - GASTROOESOPHAGEAL REFLUX DISEASE [None]
  - AZOTAEMIA [None]
  - CEREBROVASCULAR ACCIDENT [None]
  - HYPERKALAEMIA [None]
  - BLOOD UREA INCREASED [None]
  - LEFT VENTRICULAR HYPERTROPHY [None]
  - EPISTAXIS [None]
  - PNEUMONIA [None]
  - UNRESPONSIVE TO STIMULI [None]
  - RESPIRATORY FAILURE [None]
  - CEREBROVASCULAR DISORDER [None]
  - ARTERIOSCLEROSIS [None]
  - INCREASED TENDENCY TO BRUISE [None]
  - AORTIC VALVE DISEASE [None]
  - BLOOD GLUCOSE INCREASED [None]
  - FLUID OVERLOAD [None]
  - ENDOTRACHEAL INTUBATION [None]
  - PLEURAL EFFUSION [None]
  - PULMONARY HYPERTENSION [None]
  - TACHYCARDIA [None]
  - CHEST DISCOMFORT [None]
  - EMOTIONAL DISTRESS [None]
  - AORTIC STENOSIS [None]
  - CAROTID ARTERY DISEASE [None]
  - MELAENA [None]
  - RENAL FAILURE CHRONIC [None]
  - ATRIAL FIBRILLATION [None]
  - OEDEMA PERIPHERAL [None]
  - DISABILITY [None]
  - COUGH [None]
  - OCCULT BLOOD POSITIVE [None]
  - FEELING ABNORMAL [None]
  - PALLOR [None]
  - DUODENAL ULCER HAEMORRHAGE [None]
  - RENAL ARTERY STENOSIS [None]
  - CARDIAC MURMUR [None]
  - ORTHOPNOEA [None]
  - METABOLIC ACIDOSIS [None]
  - DYSPNOEA PAROXYSMAL NOCTURNAL [None]
  - LUNG INFILTRATION [None]
  - ANAEMIA [None]
  - CHEST PAIN [None]
  - HEART RATE DECREASED [None]
  - WOUND [None]
  - ANXIETY [None]
  - ACTIVITIES OF DAILY LIVING IMPAIRED [None]
  - CELLULITIS [None]
  - GASTRITIS [None]
  - BENIGN PROSTATIC HYPERPLASIA [None]
  - VITAMIN D DEFICIENCY [None]
  - HYPOTENSION [None]
  - HAEMATURIA [None]
  - HYPOXIA [None]
  - CONFUSIONAL STATE [None]
  - PAIN [None]
  - ECONOMIC PROBLEM [None]
  - BLOOD PRESSURE DECREASED [None]
  - TRANSFUSION [None]
  - HAEMATOCRIT DECREASED [None]
  - GASTROINTESTINAL HAEMORRHAGE [None]
  - HYPERLIPIDAEMIA [None]
  - BLOOD CREATININE INCREASED [None]
  - HYPERHIDROSIS [None]
  - CARDIAC VALVE DISEASE [None]
  - DEPRESSED LEVEL OF CONSCIOUSNESS [None]
  - SYNCOPE [None]
  - BRADYCARDIA [None]
  - HYPERCHOLESTEROLAEMIA [None]
  - INJURY [None]
  - ILL-DEFINED DISORDER [None]
  - FEAR [None]
  - CORONARY ARTERIAL STENT INSERTION [None]
  - OESOPHAGOGASTRODUODENOSCOPY [None]
  - COLONOSCOPY [None]
  - HELICOBACTER TEST POSITIVE [None]
  - HELICOBACTER GASTRITIS [None]
  - IRON DEFICIENCY ANAEMIA [None]
  - HYPERTENSION [None]
  - MINERAL DEFICIENCY [None]
  - CARDIOMYOPATHY [None]
  - ANGINA PECTORIS [None]
  - TREATMENT NONCOMPLIANCE [None]
  - HAEMOGLOBIN DECREASED [None]
  - EX-TOBACCO USER [None]
  - MECHANICAL VENTILATION [None]
  - BUNDLE BRANCH BLOCK RIGHT [None]
  - HYPERGLYCAEMIA [None]
  - ELECTROCARDIOGRAM ABNORMAL [None]
  - BREATH SOUNDS ABNORMAL [None]
  - SINUS TACHYCARDIA [None]
  - LABORATORY TEST ABNORMAL [None]
  - ERYTHEMA [None]
